FAERS Safety Report 9023976 (Version 2)
Quarter: 2013Q1

REPORT INFORMATION
  Report Type: Spontaneous
  Country: US (occurrence: US)
  Receive Date: 20130122
  Receipt Date: 20130307
  Transmission Date: 20140127
  Serious: Yes (Death, Hospitalization)
  Sender: FDA-Public Use
  Company Number: US-AMGEN-USASP2013002936

PATIENT
  Age: 57 Year
  Sex: Female
  Weight: 63.49 kg

DRUGS (4)
  1. ENBREL [Suspect]
     Indication: RHEUMATOID ARTHRITIS
     Dosage: 25 MG, QWK
     Route: 058
     Dates: start: 1998
  2. PROZAC [Concomitant]
     Dosage: UNK
     Route: 048
  3. SEROQUEL [Concomitant]
     Dosage: UNK
  4. KLONOPIN [Concomitant]
     Dosage: UNK

REACTIONS (1)
  - Cerebrovascular accident [Fatal]
